FAERS Safety Report 9879407 (Version 2)
Quarter: 2014Q1

REPORT INFORMATION
  Report Type: Spontaneous
  Country: US (occurrence: US)
  Receive Date: 20140206
  Receipt Date: 20140218
  Transmission Date: 20141002
  Serious: Yes (Life-Threatening, Other)
  Sender: FDA-Public Use
  Company Number: US-JHP PHARMACEUTICALS, LLC-JHP201400025

PATIENT
  Age: 51 Year
  Sex: Male

DRUGS (6)
  1. AMIODARONE [Suspect]
     Indication: VENTRICULAR FIBRILLATION
     Dosage: 300 MG,
  2. ADRENALIN [Suspect]
     Indication: VENTRICULAR FIBRILLATION
     Dosage: MULTIPLE DOSES
  3. LIDOCAINE [Suspect]
     Indication: VENTRICULAR FIBRILLATION
     Dosage: 1 AMP
  4. BICARBONATE [Suspect]
     Dosage: 1 AMP
  5. ASPIRIN [Concomitant]
  6. NITROGLYCERIN [Concomitant]

REACTIONS (2)
  - Drug ineffective [Recovered/Resolved]
  - Drug ineffective for unapproved indication [Recovered/Resolved]
